FAERS Safety Report 18554064 (Version 1)
Quarter: 2020Q4

REPORT INFORMATION
  Report Type: Spontaneous
  Country: JP (occurrence: JP)
  Receive Date: 20201127
  Receipt Date: 20201127
  Transmission Date: 20210114
  Serious: Yes (Other)
  Sender: FDA-Public Use
  Company Number: JP-SUNOVION-2020DSP014903

PATIENT
  Age: 36 Year
  Sex: Female

DRUGS (7)
  1. REXULTI [Suspect]
     Active Substance: BREXPIPRAZOLE
     Indication: PRODUCT USED FOR UNKNOWN INDICATION
     Dosage: UNK
     Route: 048
  2. QUETIAPINE FUMARATE. [Concomitant]
     Active Substance: QUETIAPINE FUMARATE
     Dosage: UNKNOWN-200MG, QD
     Route: 065
     Dates: start: 202006
  3. OLANZAPINE. [Suspect]
     Active Substance: OLANZAPINE
     Indication: PRODUCT USED FOR UNKNOWN INDICATION
     Dosage: UNK
     Route: 065
  4. ABILIFY [Suspect]
     Active Substance: ARIPIPRAZOLE
     Indication: PRODUCT USED FOR UNKNOWN INDICATION
     Dosage: UNK
     Route: 065
  5. RISPERIDONE. [Concomitant]
     Active Substance: RISPERIDONE
     Dosage: 2 MG, QD
     Route: 048
  6. LATUDA [Suspect]
     Active Substance: LURASIDONE HYDROCHLORIDE
     Indication: SCHIZOPHRENIA
     Dosage: 20-40MG, QD
     Route: 048
     Dates: start: 202007
  7. LONASEN [Suspect]
     Active Substance: BLONANSERIN
     Indication: SCHIZOPHRENIA
     Dosage: UNK
     Route: 065

REACTIONS (8)
  - Delusion [Unknown]
  - Purulence [Unknown]
  - Dry skin [Unknown]
  - Dyspnoea [Unknown]
  - Hallucination [Unknown]
  - Insomnia [Unknown]
  - Intentional dose omission [Unknown]
  - Prescribed underdose [Unknown]
